FAERS Safety Report 10839748 (Version 1)
Quarter: 2015Q1

REPORT INFORMATION
  Report Type: Report from Study
  Country: US (occurrence: US)
  Receive Date: 20150220
  Receipt Date: 20150220
  Transmission Date: 20150721
  Serious: Yes (Other)
  Sender: FDA-Public Use
  Company Number: US-ABBVIE-14P-163-1234668-00

PATIENT
  Age: 43 Year
  Sex: Female

DRUGS (10)
  1. ENALAPRIL-HCTZ [Concomitant]
     Indication: BLOOD PRESSURE
     Dosage: 10/25MG
  2. PRILOSEC [Concomitant]
     Active Substance: OMEPRAZOLE MAGNESIUM
     Indication: DYSPEPSIA
  3. KOLONOPIN [Concomitant]
     Indication: ANXIETY
  4. VESICARE [Concomitant]
     Active Substance: SOLIFENACIN SUCCINATE
     Indication: INCONTINENCE
  5. SYNTHROID [Concomitant]
     Active Substance: LEVOTHYROXINE SODIUM
     Indication: HYPOTHYROIDISM
  6. ZYPREXA [Concomitant]
     Active Substance: OLANZAPINE
     Indication: BIPOLAR DISORDER
  7. HUMIRA [Suspect]
     Active Substance: ADALIMUMAB
     Indication: COLITIS ULCERATIVE
  8. PROZAC [Concomitant]
     Active Substance: FLUOXETINE HYDROCHLORIDE
     Indication: DEPRESSION
  9. KLOR-CON [Concomitant]
     Active Substance: POTASSIUM CHLORIDE
     Indication: BLOOD POTASSIUM
  10. IRON [Concomitant]
     Active Substance: IRON
     Indication: HEREDITARY SPHEROCYTOSIS

REACTIONS (11)
  - Fall [Unknown]
  - Memory impairment [Unknown]
  - Wrist fracture [Not Recovered/Not Resolved]
  - Lacrimation increased [Recovered/Resolved]
  - Limb injury [Unknown]
  - Eye pain [Recovered/Resolved]
  - Pain [Unknown]
  - Sinus headache [Recovered/Resolved]
  - Sneezing [Recovered/Resolved]
  - Scar [Unknown]
  - Feeling abnormal [Unknown]

NARRATIVE: CASE EVENT DATE: 201311
